FAERS Safety Report 10403595 (Version 2)
Quarter: 2014Q3

REPORT INFORMATION
  Report Type: Spontaneous
  Country: FR (occurrence: FR)
  Receive Date: 20140822
  Receipt Date: 20140915
  Transmission Date: 20150326
  Serious: Yes (Life-Threatening, Hospitalization)
  Sender: FDA-Public Use
  Company Number: PHHY2014FR102449

PATIENT
  Age: 25 Year
  Sex: Female

DRUGS (7)
  1. SUFENTA [Suspect]
     Active Substance: SUFENTANIL CITRATE
     Dosage: UNK UKN, UNK
     Route: 042
     Dates: start: 20140702, end: 20140702
  2. DIPRIVAN [Suspect]
     Active Substance: PROPOFOL
     Dosage: UNK UKN, UNK
     Route: 042
     Dates: start: 20140702, end: 20140702
  3. HYPNOVEL [Suspect]
     Active Substance: MIDAZOLAM\MIDAZOLAM HYDROCHLORIDE
     Dosage: UNK UKN, UNK
     Route: 042
     Dates: start: 20140702, end: 20140702
  4. PERFALGAN [Concomitant]
     Active Substance: ACETAMINOPHEN
  5. AMOXICILLIN CLAVULANIC ACID SANDOZ [Suspect]
     Active Substance: AMOXICILLIN\CLAVULANIC ACID
     Indication: ANTIBIOTIC PROPHYLAXIS
     Dosage: 2 G, QID
     Route: 042
     Dates: start: 20140702, end: 20140702
  6. TANGANIL [Suspect]
     Active Substance: ACETYLLEUCINE
     Dosage: UNK UKN, UNK
     Route: 065
     Dates: start: 20140702, end: 20140702
  7. TRACRIUM [Suspect]
     Active Substance: ATRACURIUM BESYLATE
     Dosage: UNK UKN, UNK
     Route: 042
     Dates: start: 20140702, end: 20140702

REACTIONS (1)
  - Renal failure acute [Recovered/Resolved]

NARRATIVE: CASE EVENT DATE: 20140702
